FAERS Safety Report 10741632 (Version 1)
Quarter: 2015Q1

REPORT INFORMATION
  Report Type: Spontaneous
  Country: US (occurrence: None)
  Receive Date: 20150123
  Receipt Date: 20150123
  Transmission Date: 20150721
  Serious: Yes (Other)
  Sender: FDA-Public Use
  Company Number: None

PATIENT
  Age: 44 Year
  Sex: Male

DRUGS (1)
  1. TRIMIX [Suspect]
     Active Substance: ALPROSTADIL\PAPAVERINE\PHENTOLAMINE
     Indication: ERECTILE DYSFUNCTION
     Dosage: 0.2ML, PRN/AS NEEDED, INTRACAVERNOSAL ?
     Route: 011
     Dates: start: 20150107, end: 20150108

REACTIONS (2)
  - Priapism [None]
  - Erection increased [None]

NARRATIVE: CASE EVENT DATE: 20150108
